FAERS Safety Report 8196523-2 (Version None)
Quarter: 2012Q1

REPORT INFORMATION
  Report Type: 
  Country: None (occurrence: None)
  Receive Date: 20120307
  Receipt Date: 20120206
  Transmission Date: 20120608
  Serious: No
  Sender: FDA-Public Use
  Company Number: USA/USA/12/0022955

PATIENT

DRUGS (2)
  1. TACROLIMUS [Suspect]
     Indication: PRODUCT USED FOR UNKNOWN INDICATION
     Dosage: UNKNOWN
  2. PROGRAF [Suspect]
     Indication: PRODUCT USED FOR UNKNOWN INDICATION
     Dosage: UNKNOWN

REACTIONS (2)
  - PRODUCT SUBSTITUTION ISSUE [None]
  - NEUROTOXICITY [None]
